FAERS Safety Report 11451720 (Version 1)
Quarter: 2015Q3

REPORT INFORMATION
  Report Type: Spontaneous
  Country: US (occurrence: None)
  Receive Date: 20150902
  Receipt Date: 20150902
  Transmission Date: 20151125
  Serious: No
  Sender: FDA-Public Use
  Company Number: None

PATIENT
  Age: 6 Year
  Sex: Male
  Weight: 24.95 kg

DRUGS (2)
  1. VITAMIN C [Concomitant]
     Active Substance: ASCORBIC ACID
  2. OMNICEF [Suspect]
     Active Substance: CEFDINIR
     Indication: SINUSITIS
     Route: 048
     Dates: start: 20150820, end: 20150827

REACTIONS (7)
  - Rash pruritic [None]
  - Rash generalised [None]
  - Rash erythematous [None]
  - Pyrexia [None]
  - Gait disturbance [None]
  - Musculoskeletal stiffness [None]
  - Arthritis [None]

NARRATIVE: CASE EVENT DATE: 20150820
